FAERS Safety Report 4778167-5 (Version None)
Quarter: 2005Q3

REPORT INFORMATION
  Report Type: 
  Country: None (occurrence: None)
  Receive Date: 20050923
  Receipt Date: 20050923
  Transmission Date: 20060218
  Serious: Yes (Other)
  Sender: FDA-Public Use
  Company Number: None

PATIENT
  Age: 57 Year
  Sex: Male
  Weight: 105.7 kg

DRUGS (11)
  1. ATORVASTATIN [Suspect]
  2. ISOSORBIDE DINITRATE [Concomitant]
  3. OMEPRAZOLE [Concomitant]
  4. SERTRALINE HCL [Concomitant]
  5. QUETIAPINE FUMARATE [Concomitant]
  6. FOSINOPRIL SODIUM [Concomitant]
  7. ATORVASTATIN CALCIUM [Concomitant]
  8. DILANTIN [Concomitant]
  9. PHENOBARBITAL TAB [Concomitant]
  10. PRAZOSIN HCL [Concomitant]
  11. DILTIAZEM (INWOOD) [Concomitant]

REACTIONS (1)
  - MYALGIA [None]
